FAERS Safety Report 5441815-0 (Version None)
Quarter: 2007Q3

REPORT INFORMATION
  Report Type: 
  Country: None (occurrence: None)
  Receive Date: 20070830
  Receipt Date: 20070830
  Transmission Date: 20080115
  Serious: Yes (Hospitalization)
  Sender: FDA-Public Use
  Company Number: None

PATIENT
  Age: 92 Year
  Sex: Female
  Weight: 34 kg

DRUGS (10)
  1. ARICEPT [Suspect]
     Indication: DEMENTIA
     Dates: start: 20070707, end: 20070711
  2. ASPIRIN [Concomitant]
  3. PRINIVIL [Concomitant]
  4. POTASSIUM CL [Concomitant]
  5. LASIX [Concomitant]
  6. PEPCID [Concomitant]
  7. SYNTHROID [Concomitant]
  8. LOPRESSOR [Concomitant]
  9. PENTASA [Concomitant]
  10. MEGACE [Concomitant]

REACTIONS (1)
  - PANCREATITIS [None]
